FAERS Safety Report 7089155-0 (Version None)
Quarter: 2010Q4

REPORT INFORMATION
  Report Type: 
  Country: None (occurrence: None)
  Receive Date: 20101029
  Receipt Date: 20101025
  Transmission Date: 20110411
  Serious: Yes (Hospitalization)
  Sender: FDA-Public Use
  Company Number: 734827

PATIENT
  Age: 64 Year
  Sex: Female
  Weight: 75 kg

DRUGS (8)
  1. ACYCLOVIR [Suspect]
     Indication: GUILLAIN-BARRE SYNDROME
     Dosage: 800 MG MILLIGRAM(S), 1 DAY, INTRAVENOUS , 800 MG MILLIGRAM(S) (1 DAY) INTRAVENOUS
     Route: 042
     Dates: start: 20101004, end: 20101014
  2. ACYCLOVIR [Suspect]
     Indication: HERPES ZOSTER
     Dosage: 800 MG MILLIGRAM(S), 1 DAY, INTRAVENOUS , 800 MG MILLIGRAM(S) (1 DAY) INTRAVENOUS
     Route: 042
     Dates: start: 20101004, end: 20101014
  3. ACYCLOVIR [Suspect]
     Indication: GUILLAIN-BARRE SYNDROME
     Dosage: 800 MG MILLIGRAM(S), 1 DAY, INTRAVENOUS , 800 MG MILLIGRAM(S) (1 DAY) INTRAVENOUS
     Route: 042
     Dates: start: 20101004, end: 20101014
  4. ACYCLOVIR [Suspect]
     Indication: HERPES ZOSTER
     Dosage: 800 MG MILLIGRAM(S), 1 DAY, INTRAVENOUS , 800 MG MILLIGRAM(S) (1 DAY) INTRAVENOUS
     Route: 042
     Dates: start: 20101004, end: 20101014
  5. AMLODIPINE [Concomitant]
  6. ENOXAPARIN SODIUM [Concomitant]
  7. METFORMIN HCL [Concomitant]
  8. SIMVASTATIN [Concomitant]

REACTIONS (2)
  - NEPHROPATHY [None]
  - RENAL FAILURE ACUTE [None]
